FAERS Safety Report 6872214-2 (Version None)
Quarter: 2010Q3

REPORT INFORMATION
  Report Type: 
  Country: None (occurrence: None)
  Receive Date: 20100723
  Receipt Date: 20100715
  Transmission Date: 20110219
  Serious: Yes (Other)
  Sender: FDA-Public Use
  Company Number: US-AMGEN-KDL360966

PATIENT
  Sex: Female

DRUGS (2)
  1. ENBREL [Suspect]
     Indication: PSORIASIS
     Route: 058
     Dates: start: 20090813
  2. METHOTREXATE [Concomitant]

REACTIONS (7)
  - ANGINA PECTORIS [None]
  - COUGH [None]
  - FATIGUE [None]
  - INJECTION SITE PAIN [None]
  - INJECTION SITE VESICLES [None]
  - NAUSEA [None]
  - PSORIASIS [None]
